FAERS Safety Report 13331478 (Version 1)
Quarter: 2017Q1

REPORT INFORMATION
  Report Type: Spontaneous
  Country: US (occurrence: US)
  Receive Date: 20170314
  Receipt Date: 20170314
  Transmission Date: 20170428
  Serious: No
  Sender: FDA-Public Use
  Company Number: None

PATIENT
  Age: 25 Year
  Sex: Female
  Weight: 94.05 kg

DRUGS (1)
  1. DULCOEASE [Suspect]
     Active Substance: DOCUSATE SODIUM
     Indication: CONSTIPATION
     Dosage: OTHER FREQUENCY:1-3 CAPSULE A DAY;?
     Route: 048
     Dates: start: 20170312, end: 20170313

REACTIONS (3)
  - Abdominal discomfort [None]
  - Chest pain [None]
  - Back pain [None]

NARRATIVE: CASE EVENT DATE: 20170314
